FAERS Safety Report 5217069-7 (Version None)
Quarter: 2007Q1

REPORT INFORMATION
  Report Type: 
  Country: None (occurrence: None)
  Receive Date: 20070124
  Receipt Date: 20070115
  Transmission Date: 20070707
  Serious: Yes (Hospitalization, Other)
  Sender: FDA-Public Use
  Company Number: US-ELI_LILLY_AND_COMPANY-US200602004944

PATIENT
  Age: 70 Year
  Sex: Female
  Weight: 56.235 kg

DRUGS (3)
  1. LIPITOR [Concomitant]
     Dosage: UNK, DAILY (1/D)
  2. FORTEO [Suspect]
     Indication: OSTEOPOROSIS
     Dosage: 20 UG/DAY, UNK
     Route: 058
     Dates: start: 20050615
  3. FORTEO [Suspect]

REACTIONS (4)
  - CHOLECYSTITIS CHRONIC [None]
  - HEPATIC ENZYME ABNORMAL [None]
  - INFLUENZA [None]
  - NAUSEA [None]
